FAERS Safety Report 6169503-6 (Version None)
Quarter: 2009Q2

REPORT INFORMATION
  Report Type: 
  Country: None (occurrence: None)
  Receive Date: 20090424
  Receipt Date: 20090218
  Transmission Date: 20091009
  Serious: No
  Sender: FDA-Public Use
  Company Number: SPV1-2008-02733

PATIENT
  Age: 8 Year
  Sex: Male
  Weight: 23.6 kg

DRUGS (6)
  1. VYVANSE [Suspect]
     Indication: BIPOLAR DISORDER
     Dosage: 30 MG, 1X/DAY:QD, ORAL ; 40 MG, 1X/DAY:QD, ORAL
     Route: 048
     Dates: start: 20080901, end: 20080901
  2. ENALAPRIL MALEATE [Concomitant]
  3. RISPERDAL [Concomitant]
  4. ASPIRIN [Concomitant]
  5. VITAMINS NOS [Concomitant]
  6. PREVACID [Concomitant]

REACTIONS (3)
  - CHEST PAIN [None]
  - OFF LABEL USE [None]
  - PHOTOPHOBIA [None]
